FAERS Safety Report 11128994 (Version 1)
Quarter: 2015Q2

REPORT INFORMATION
  Report Type: Spontaneous
  Country: US (occurrence: US)
  Receive Date: 20150521
  Receipt Date: 20150521
  Transmission Date: 20150821
  Serious: Yes (Hospitalization, Other)
  Sender: FDA-Public Use
  Company Number: US-GLAXOSMITHKLINE-US2015066607

PATIENT
  Sex: Male

DRUGS (5)
  1. AMLODIPINE [Suspect]
     Active Substance: AMLODIPINE BESYLATE
     Indication: PRODUCT USED FOR UNKNOWN INDICATION
     Dosage: UNK, U
     Route: 065
     Dates: start: 2015
  2. VOTRIENT [Suspect]
     Active Substance: PAZOPANIB HYDROCHLORIDE
     Indication: LUNG NEOPLASM MALIGNANT
     Dosage: 800 MG, QD
     Route: 048
     Dates: start: 201503, end: 20150507
  3. LISINOPRIL. [Suspect]
     Active Substance: LISINOPRIL
     Indication: PRODUCT USED FOR UNKNOWN INDICATION
     Dosage: UNK, U
     Route: 065
     Dates: start: 2015, end: 2015
  4. SIMVASTATIN. [Concomitant]
     Active Substance: SIMVASTATIN
  5. TAMSULOSIN [Concomitant]
     Active Substance: TAMSULOSIN

REACTIONS (5)
  - Off label use [Unknown]
  - Hypotension [Unknown]
  - Transient ischaemic attack [Recovering/Resolving]
  - Hypertension [Recovering/Resolving]
  - Hepatic enzyme increased [Recovering/Resolving]

NARRATIVE: CASE EVENT DATE: 2015
